FAERS Safety Report 10726636 (Version 1)
Quarter: 2015Q1

REPORT INFORMATION
  Report Type: Spontaneous
  Country: BR (occurrence: BR)
  Receive Date: 20150121
  Receipt Date: 20150121
  Transmission Date: 20150721
  Serious: Yes (Other)
  Sender: FDA-Public Use
  Company Number: BR-SA-2014SA149078

PATIENT
  Age: 40 Year
  Sex: Female
  Weight: 61 kg

DRUGS (4)
  1. CLEXANE [Suspect]
     Active Substance: ENOXAPARIN SODIUM
     Indication: THROMBOSIS
     Dosage: THERAPY START DATE: 9 MONTHS BEFORE THE PREGNANCY?THERAPY STOP DATE: 15 DAYS AFTER THE DELIVERY
     Dates: start: 2013, end: 201412
  2. DOCOSAHEXANOIC ACID [Concomitant]
     Indication: VITAMIN SUPPLEMENTATION
     Dosage: START DATE: 7 TH MONTH OF PREGNACY?STOP DATE: AFTER PREGNANCY
     Route: 048
  3. PANTHENOL/RETINOL/THIAMINE HYDROCHLORIDE/ASCORBIC ACID/ERGOCALCIFEROL/FOLIC ACID/RIBOFLAVIN/NICOTINA [Concomitant]
     Dosage: START DATE:AS SOON AS SHE GOT PREGNANT?STOP DATE: WOULD USE IT DURING THE BREASTFEEDING
  4. UTROGESTAN [Concomitant]
     Active Substance: PROGESTERONE
     Indication: HIGH RISK PREGNANCY
     Route: 067

REACTIONS (2)
  - Caesarean section [Unknown]
  - Exposure during pregnancy [Unknown]

NARRATIVE: CASE EVENT DATE: 20141124
